FAERS Safety Report 9168637 (Version 1)
Quarter: 2013Q1

REPORT INFORMATION
  Report Type: Spontaneous
  Country: US (occurrence: US)
  Receive Date: 20130318
  Receipt Date: 20130318
  Transmission Date: 20140127
  Serious: Yes (Other)
  Sender: FDA-Public Use
  Company Number: US-JNJFOC-20130308730

PATIENT
  Age: 51 Year
  Sex: Female

DRUGS (1)
  1. EDURANT [Suspect]
     Indication: HIV INFECTION
     Route: 048

REACTIONS (1)
  - Major depression [Recovered/Resolved]
